FAERS Safety Report 24964472 (Version 1)
Quarter: 2025Q1

REPORT INFORMATION
  Report Type: Spontaneous
  Country: FR (occurrence: FR)
  Receive Date: 20250213
  Receipt Date: 20250213
  Transmission Date: 20250408
  Serious: Yes (Hospitalization)
  Sender: RANBAXY
  Company Number: FR-SUN PHARMACEUTICAL INDUSTRIES LTD-2025RR-494307

PATIENT
  Age: 58 Year
  Sex: Female

DRUGS (6)
  1. ACETAMINOPHEN [Suspect]
     Active Substance: ACETAMINOPHEN
     Indication: Toxicity to various agents
     Route: 048
     Dates: start: 20241031, end: 20241031
  2. QUETIAPINE [Suspect]
     Active Substance: QUETIAPINE
     Indication: Toxicity to various agents
     Route: 048
     Dates: start: 20241031, end: 20241031
  3. CODEINE [Suspect]
     Active Substance: CODEINE
     Indication: Toxicity to various agents
     Route: 048
     Dates: start: 20241031, end: 20241031
  4. NALTREXONE [Suspect]
     Active Substance: NALTREXONE
     Indication: Toxicity to various agents
     Route: 048
     Dates: start: 20241031, end: 20241031
  5. TRIMEPRAZINE [Suspect]
     Active Substance: TRIMEPRAZINE
     Indication: Toxicity to various agents
     Route: 048
     Dates: start: 20241031, end: 20241031
  6. OXAZEPAM [Suspect]
     Active Substance: OXAZEPAM
     Indication: Toxicity to various agents
     Route: 048
     Dates: start: 20241031, end: 20241031

REACTIONS (8)
  - Hepatic cytolysis [Recovered/Resolved]
  - Disturbance in attention [Recovered/Resolved]
  - Tachycardia [Recovered/Resolved]
  - Tremor [Recovered/Resolved]
  - Acetonaemia [Recovered/Resolved]
  - Acute kidney injury [Recovered/Resolved]
  - Rhabdomyolysis [Recovered/Resolved]
  - Toxicity to various agents [Recovered/Resolved]

NARRATIVE: CASE EVENT DATE: 20241031
